FAERS Safety Report 5333096-3 (Version None)
Quarter: 2007Q2

REPORT INFORMATION
  Report Type: 
  Country: None (occurrence: None)
  Receive Date: 20070524
  Receipt Date: 20070515
  Transmission Date: 20071010
  Serious: Yes (Other)
  Sender: FDA-Public Use
  Company Number: US-JNJFOC-20070403321

PATIENT
  Sex: Male
  Weight: 94.35 kg

DRUGS (3)
  1. REMICADE [Suspect]
     Indication: RHEUMATOID ARTHRITIS
     Route: 042
  2. LEFLUNOMIDE [Concomitant]
  3. METHOTREXATE [Concomitant]

REACTIONS (2)
  - ABDOMINAL PAIN UPPER [None]
  - BENIGN NEOPLASM [None]
